FAERS Safety Report 9317774 (Version 2)
Quarter: 2013Q2

REPORT INFORMATION
  Report Type: Spontaneous
  Country: JP (occurrence: None)
  Receive Date: 20130524
  Receipt Date: 20130611
  Transmission Date: 20140414
  Serious: Yes (Other)
  Sender: FDA-Public Use
  Company Number: AXC-2013-000220

PATIENT
  Sex: Male

DRUGS (5)
  1. URSODEOXYCHOLIC ACID [Suspect]
     Indication: PRODUCT USED FOR UNKNOWN INDICATION
  2. DAIKENCHUTO [Suspect]
     Indication: PRODUCT USED FOR UNKNOWN INDICATION
  3. GLUTAMINE [Suspect]
     Indication: NUTRITIONAL SUPPLEMENTATION
  4. ELENTAL-P [Suspect]
     Indication: NUTRITIONAL SUPPLEMENTATION
  5. MARZULENE [Concomitant]

REACTIONS (5)
  - Enterocolitis [None]
  - Intestinal dilatation [None]
  - Haematochezia [None]
  - Device related infection [None]
  - Weight decreased [None]
